FAERS Safety Report 15647196 (Version 5)
Quarter: 2019Q4

REPORT INFORMATION
  Report Type: Report from Study
  Country: CO (occurrence: CO)
  Receive Date: 20181122
  Receipt Date: 20191023
  Transmission Date: 20200122
  Serious: Yes (Hospitalization, Other)
  Sender: FDA-Public Use
  Company Number: CO-ASTELLAS-2018US044272

PATIENT
  Age: 62 Year
  Sex: Female
  Weight: 34 kg

DRUGS (11)
  1. PREDNISOLONE. [Concomitant]
     Active Substance: PREDNISOLONE
     Indication: TRANSPLANT
     Route: 048
     Dates: start: 20160417
  2. POSACONAZOLE [Concomitant]
     Active Substance: POSACONAZOLE
     Indication: BACTERAEMIA
     Dosage: 100 MG, UNKNOWN FREQ.(2 IN NIGHT)
     Route: 048
  3. SERTRALINE [Concomitant]
     Active Substance: SERTRALINE HYDROCHLORIDE
     Indication: PRODUCT USED FOR UNKNOWN INDICATION
     Route: 048
  4. METOPROLOL. [Concomitant]
     Active Substance: METOPROLOL
     Indication: BLOOD PRESSURE MEASUREMENT
     Route: 048
  5. LINAGLIPTIN [Concomitant]
     Active Substance: LINAGLIPTIN
     Indication: DIABETES MELLITUS
     Dosage: UNK UNK, UNKNOWN FREQ.
     Route: 048
  6. CALCIFORTE                         /01045901/ [Concomitant]
     Indication: OSTEOPOROSIS
     Dosage: UNK UNK, UNKNOWN FREQ.
     Route: 048
  7. TACROLIMUS. [Suspect]
     Active Substance: TACROLIMUS
     Indication: LIVER TRANSPLANT
     Dosage: 5 MG, ONCE DAILY (1 CAPUSLE OF 5 MG)
     Route: 048
     Dates: start: 20160417
  8. MYCOPHENOLATE [Concomitant]
     Active Substance: MYCOPHENOLIC ACID
     Indication: TRANSPLANT
     Route: 048
     Dates: start: 20160417
  9. PREDNISOLONE. [Concomitant]
     Active Substance: PREDNISOLONE
     Dosage: 5 MG, ONCE DAILY (2 TABLETS)
     Route: 048
  10. MORPHINE [Concomitant]
     Active Substance: MORPHINE
     Indication: BONE PAIN
     Route: 048
  11. TACROLIMUS. [Suspect]
     Active Substance: TACROLIMUS
     Dosage: 1 MG, ONCE DAILY (1 CAPSULE OF 1 MG)
     Route: 048
     Dates: start: 20160417

REACTIONS (13)
  - Psychiatric symptom [Recovering/Resolving]
  - Immunosuppressant drug level [Not Recovered/Not Resolved]
  - Oxygen saturation decreased [Recovered/Resolved]
  - Gastrointestinal bacterial infection [Recovered/Resolved]
  - Product use in unapproved indication [Unknown]
  - Blood calcium abnormal [Recovered/Resolved]
  - Blood magnesium decreased [Recovered/Resolved]
  - Oral infection [Recovered/Resolved]
  - Blood potassium decreased [Not Recovered/Not Resolved]
  - Chest pain [Recovered/Resolved]
  - Fungal infection [Recovering/Resolving]
  - Pneumonia [Recovered/Resolved]
  - Pneumonia [Recovering/Resolving]

NARRATIVE: CASE EVENT DATE: 2018
